FAERS Safety Report 23078801 (Version 1)
Quarter: 2023Q4

REPORT INFORMATION
  Report Type: Spontaneous
  Country: US (occurrence: US)
  Receive Date: 20231018
  Receipt Date: 20231018
  Transmission Date: 20240110
  Serious: No
  Sender: FDA-Public Use
  Company Number: US-BAYER-2023A133556

PATIENT
  Age: 20 Year
  Sex: Female

DRUGS (1)
  1. SKYLA [Suspect]
     Active Substance: LEVONORGESTREL
     Indication: Menstruation irregular
     Dosage: 14?G/DAY
     Route: 015
     Dates: start: 202209

REACTIONS (5)
  - Device dislocation [None]
  - Medical device pain [None]
  - Medical device discomfort [None]
  - Off label use of device [None]
  - Device use issue [None]
